FAERS Safety Report 9915183 (Version 2)
Quarter: 2014Q1

REPORT INFORMATION
  Report Type: Report from Study
  Country: US (occurrence: US)
  Receive Date: 20140220
  Receipt Date: 20140304
  Transmission Date: 20141002
  Serious: Yes (Death)
  Sender: FDA-Public Use
  Company Number: US-ROCHE-1353629

PATIENT
  Age: 86 Year
  Sex: Male

DRUGS (8)
  1. LUCENTIS [Suspect]
     Indication: AGE-RELATED MACULAR DEGENERATION
     Route: 050
     Dates: start: 20130619, end: 20130619
  2. LUCENTIS [Suspect]
     Route: 050
     Dates: start: 20130508, end: 20130508
  3. LUCENTIS [Suspect]
     Route: 050
     Dates: start: 20130327, end: 20130327
  4. LISINOPRIL [Concomitant]
     Indication: HYPERTENSION
  5. ZOCOR [Concomitant]
     Indication: HYPERCHOLESTEROLAEMIA
  6. TERAZOSIN HCL [Concomitant]
     Indication: HYPERTENSION
  7. ALBUTEROL [Concomitant]
     Indication: CHRONIC OBSTRUCTIVE PULMONARY DISEASE
  8. KLOR-CON [Concomitant]
     Indication: HYPOKALAEMIA

REACTIONS (1)
  - Death [Fatal]
